FAERS Safety Report 15279817 (Version 1)
Quarter: 2018Q3

REPORT INFORMATION
  Report Type: Spontaneous
  Country: US (occurrence: US)
  Receive Date: 20180815
  Receipt Date: 20180815
  Transmission Date: 20181010
  Serious: Yes (Death, Other)
  Sender: FDA-Public Use
  Company Number: US-ENDO PHARMACEUTICALS INC-2018-040523

PATIENT
  Age: 25 Year
  Sex: Female
  Weight: 101 kg

DRUGS (1)
  1. PERCOCET [Suspect]
     Active Substance: ACETAMINOPHEN\OXYCODONE HYDROCHLORIDE
     Indication: BACK PAIN
     Dosage: UNK UNKNOWN, UNKNOWN
     Route: 065

REACTIONS (6)
  - Victim of crime [Unknown]
  - Sudden death [Fatal]
  - Overdose [Fatal]
  - Brain oedema [Unknown]
  - Unevaluable event [Unknown]
  - Depression [Unknown]

NARRATIVE: CASE EVENT DATE: 20100802
